FAERS Safety Report 4809259-X (Version None)
Quarter: 2005Q4

REPORT INFORMATION
  Report Type: 
  Country: None (occurrence: None)
  Receive Date: 20051021
  Receipt Date: 20051011
  Transmission Date: 20060501
  Serious: Yes (Hospitalization)
  Sender: FDA-Public Use
  Company Number: 8012710

PATIENT
  Age: 78 Year
  Sex: Female

DRUGS (7)
  1. ZAROXOLYN [Suspect]
     Indication: HYPERTENSION
     Dosage: 10 MG/D PO
     Route: 048
     Dates: start: 20050630
  2. ZAROXOLYN [Suspect]
     Indication: OEDEMA
     Dosage: 10 MG/D PO
     Route: 048
     Dates: start: 20050630
  3. APRESOLINE [Concomitant]
  4. INSULIN RAPID                /00030501/ [Concomitant]
  5. NPH ILETIN I (BEEF-PORK) [Concomitant]
  6. LASIX                    /0032601/ [Concomitant]
  7. PANALOC [Concomitant]

REACTIONS (5)
  - ARTHRITIS BACTERIAL [None]
  - GOUT [None]
  - INFECTION [None]
  - PAIN [None]
  - PAIN IN EXTREMITY [None]
